FAERS Safety Report 5931384-0 (Version None)
Quarter: 2008Q4

REPORT INFORMATION
  Report Type: 
  Country: None (occurrence: None)
  Receive Date: 20081024
  Receipt Date: 20081024
  Transmission Date: 20090506
  Serious: No
  Sender: FDA-Public Use
  Company Number: None

PATIENT
  Sex: Male

DRUGS (1)
  1. VALPROIC ACID [Suspect]
     Dosage: 750MG BID PO
     Route: 048
     Dates: start: 20080812, end: 20080919

REACTIONS (1)
  - AMMONIA INCREASED [None]
